FAERS Safety Report 5187783-0 (Version None)
Quarter: 2006Q4

REPORT INFORMATION
  Report Type: 
  Country: None (occurrence: None)
  Receive Date: 20061212
  Receipt Date: 20061206
  Transmission Date: 20070319
  Serious: Yes (Death, Other)
  Sender: FDA-Public Use
  Company Number: GXBR2006US02121

PATIENT
  Age: 66 Year
  Sex: Male
  Weight: 83.9 kg

DRUGS (3)
  1. AMIODARONE HCL [Suspect]
     Indication: VENTRICULAR ARRHYTHMIA
     Dosage: 200 MG, BID2SDO, ORAL
     Route: 048
     Dates: start: 20050601
  2. ATENOLOL [Concomitant]
  3. COUMADIN [Concomitant]

REACTIONS (3)
  - BRADYCARDIA [None]
  - CONDITION AGGRAVATED [None]
  - CREUTZFELDT-JAKOB DISEASE [None]
